FAERS Safety Report 5142985-4 (Version None)
Quarter: 2006Q4

REPORT INFORMATION
  Report Type: 
  Country: None (occurrence: None)
  Receive Date: 20061103
  Receipt Date: 20061023
  Transmission Date: 20070319
  Serious: Yes (Other)
  Sender: FDA-Public Use
  Company Number: DE-JNJFOC-20061005726

PATIENT
  Age: 7 Year
  Sex: Female
  Weight: 20 kg

DRUGS (6)
  1. TOPAMAX [Suspect]
     Indication: EPILEPSY
     Route: 048
  2. OMEPRAZOLE [Interacting]
     Indication: DRUG USE FOR UNKNOWN INDICATION
     Route: 048
  3. CALCIUM [Interacting]
     Indication: DRUG USE FOR UNKNOWN INDICATION
     Route: 048
  4. VIGANTOLETTEN [Interacting]
     Indication: DRUG USE FOR UNKNOWN INDICATION
     Route: 048
  5. ORFIRIL LONG [Interacting]
     Indication: DRUG USE FOR UNKNOWN INDICATION
     Route: 048
  6. FORTECORTIN [Interacting]
     Indication: DRUG USE FOR UNKNOWN INDICATION
     Route: 048

REACTIONS (2)
  - CONVULSION [None]
  - DRUG INTERACTION [None]
